FAERS Safety Report 21785307 (Version 1)
Quarter: 2022Q4

REPORT INFORMATION
  Report Type: Spontaneous
  Country: US (occurrence: US)
  Receive Date: 20221227
  Receipt Date: 20221227
  Transmission Date: 20230113
  Serious: No
  Sender: FDA-Public Use
  Company Number: US-ALXN-A202216133

PATIENT
  Sex: Female
  Weight: 83.9 kg

DRUGS (2)
  1. SOLIRIS [Suspect]
     Active Substance: ECULIZUMAB
     Indication: Multiple sclerosis
     Dosage: 1200 MG, Q2W
     Route: 042
     Dates: start: 20190829
  2. SOLIRIS [Suspect]
     Active Substance: ECULIZUMAB
     Indication: Off label use

REACTIONS (3)
  - Burning sensation [Unknown]
  - Off label use [Unknown]
  - Pain in extremity [Unknown]
